FAERS Safety Report 6113078-4 (Version None)
Quarter: 2009Q1

REPORT INFORMATION
  Report Type: 
  Country: None (occurrence: None)
  Receive Date: 20090312
  Receipt Date: 20090303
  Transmission Date: 20090719
  Serious: Yes (Hospitalization, Disabling)
  Sender: FDA-Public Use
  Company Number: HR-ABBOTT-09P-216-0560089-00

PATIENT
  Sex: Male

DRUGS (1)
  1. ZEMPLAR [Suspect]
     Indication: DRUG USE FOR UNKNOWN INDICATION
     Dates: start: 20090201

REACTIONS (3)
  - DYSPHASIA [None]
  - HAEMORRHAGIC CEREBRAL INFARCTION [None]
  - PNEUMONIA [None]
